FAERS Safety Report 22236885 (Version 1)
Quarter: 2023Q2

REPORT INFORMATION
  Report Type: Report from Study
  Country: AE (occurrence: AE)
  Receive Date: 20230420
  Receipt Date: 20230420
  Transmission Date: 20230722
  Serious: Yes (Other)
  Sender: FDA-Public Use
  Company Number: AE-ABBVIE-4736649

PATIENT
  Age: 37 Year
  Sex: Male
  Weight: 70 kg

DRUGS (4)
  1. HUMIRA [Suspect]
     Active Substance: ADALIMUMAB
     Indication: Crohn^s disease
     Dosage: LAST ADMIN DATE-2012
     Route: 058
     Dates: start: 201208
  2. HUMIRA [Suspect]
     Active Substance: ADALIMUMAB
     Dosage: PATIENT CAN^T RECALL THE LOADING DOSE
     Route: 058
     Dates: start: 201208, end: 201208
  3. HUMIRA [Suspect]
     Active Substance: ADALIMUMAB
     Route: 058
     Dates: start: 2013, end: 201906
  4. HUMIRA [Suspect]
     Active Substance: ADALIMUMAB
     Indication: Crohn^s disease
     Route: 058
     Dates: start: 201906

REACTIONS (2)
  - Intestinal stenosis [Not Recovered/Not Resolved]
  - Intestinal stenosis [Not Recovered/Not Resolved]

NARRATIVE: CASE EVENT DATE: 20220901
